FAERS Safety Report 24728690 (Version 1)
Quarter: 2024Q4

REPORT INFORMATION
  Report Type: Report from Study
  Country: BR (occurrence: BR)
  Receive Date: 20241212
  Receipt Date: 20241212
  Transmission Date: 20250115
  Serious: Yes (Hospitalization)
  Sender: SANDOZ
  Company Number: BR-002147023-NVSC2024BR078812

PATIENT
  Age: 54 Year
  Sex: Female

DRUGS (1)
  1. ENALAPRIL [Suspect]
     Active Substance: ENALAPRIL
     Indication: Chagas^ cardiomyopathy
     Dosage: 10 MG, 2X/DIA
     Route: 048

REACTIONS (3)
  - Gastroenteritis [Recovered/Resolved]
  - Atrial flutter [Recovered/Resolved]
  - Cardiac failure [Recovered/Resolved]

NARRATIVE: CASE EVENT DATE: 20240122
